FAERS Safety Report 5152591-3 (Version None)
Quarter: 2006Q4

REPORT INFORMATION
  Report Type: 
  Country: None (occurrence: None)
  Receive Date: 20061109
  Receipt Date: 20061101
  Transmission Date: 20070319
  Serious: Yes (Hospitalization)
  Sender: FDA-Public Use
  Company Number: OSCN-NO-0611S-0316

PATIENT
  Age: 46 Year
  Sex: Male

DRUGS (1)
  1. OMNISCAN (GADODIAMINE) [Suspect]
     Indication: DRUG USE FOR UNKNOWN INDICATION
     Dosage: 12 ML, SINGLE DOSE, I.V.
     Route: 042
     Dates: start: 20061018, end: 20061018

REACTIONS (5)
  - COLD SWEAT [None]
  - DIZZINESS [None]
  - MUSCLE SPASMS [None]
  - SYNCOPE [None]
  - URINARY INCONTINENCE [None]
